FAERS Safety Report 20765201 (Version 1)
Quarter: 2022Q2

REPORT INFORMATION
  Report Type: Spontaneous
  Country: RU (occurrence: RU)
  Receive Date: 20220428
  Receipt Date: 20220428
  Transmission Date: 20220720
  Serious: Yes (Other)
  Sender: FDA-Public Use
  Company Number: RU-PFIZER INC-202200609471

PATIENT
  Age: 71 Year
  Sex: Male

DRUGS (4)
  1. NICERGOLINE [Suspect]
     Active Substance: NICERGOLINE
     Indication: Polyneuropathy
     Dosage: 10 MG, 3X/DAY
     Route: 048
     Dates: start: 20220418
  2. NEURONTIN [Suspect]
     Active Substance: GABAPENTIN
     Indication: Polyneuropathy
     Dosage: 1 DF, DAILY
     Dates: start: 20220418
  3. NEURONTIN [Suspect]
     Active Substance: GABAPENTIN
     Dosage: 2 DF, 2X/DAY
     Dates: start: 20220419
  4. NEURONTIN [Suspect]
     Active Substance: GABAPENTIN
     Dosage: 3 DF, 3X/DAY
     Dates: start: 20220420

REACTIONS (5)
  - Altered state of consciousness [Not Recovered/Not Resolved]
  - Blood pressure decreased [Recovered/Resolved]
  - Somnolence [Not Recovered/Not Resolved]
  - Condition aggravated [Not Recovered/Not Resolved]
  - Off label use [Not Recovered/Not Resolved]

NARRATIVE: CASE EVENT DATE: 20220418
